FAERS Safety Report 17547085 (Version 1)
Quarter: 2020Q1

REPORT INFORMATION
  Report Type: Spontaneous
  Country: BR (occurrence: BR)
  Receive Date: 20200316
  Receipt Date: 20200316
  Transmission Date: 20200409
  Serious: Yes (Other)
  Sender: FDA-Public Use
  Company Number: NVSC2020BR073270

PATIENT
  Age: 83 Year
  Weight: 90 kg

DRUGS (4)
  1. LOSARTAN. [Suspect]
     Active Substance: LOSARTAN
     Indication: BLOOD PRESSURE MEASUREMENT
     Dosage: 1 DF, BID (MORE THAN 30 YEARS)
     Route: 048
  2. AMLODIPINE [Concomitant]
     Active Substance: AMLODIPINE BESYLATE
     Indication: BLOOD PRESSURE MEASUREMENT
     Dosage: 1 DF, BID (MORE THAN)
     Route: 048
  3. METFORMIN [Concomitant]
     Active Substance: METFORMIN HYDROCHLORIDE
     Indication: DIABETES MELLITUS
     Dosage: 1 DF, TID (5 YEARS AGO)
     Route: 048
  4. SANDOSTATIN [Concomitant]
     Active Substance: OCTREOTIDE ACETATE
     Indication: ACROMEGALY
     Dosage: 30 MG, QD
     Route: 030
     Dates: start: 201401

REACTIONS (13)
  - Pain in extremity [Not Recovered/Not Resolved]
  - Pain [Recovering/Resolving]
  - Muscular weakness [Not Recovered/Not Resolved]
  - Acromegaly [Not Recovered/Not Resolved]
  - Nervousness [Recovering/Resolving]
  - Lip swelling [Recovered/Resolved]
  - Lip disorder [Recovered/Resolved]
  - Peripheral swelling [Recovered/Resolved]
  - Gait disturbance [Unknown]
  - Eye swelling [Recovered/Resolved]
  - Neoplasm progression [Not Recovered/Not Resolved]
  - Pneumonia [Recovered/Resolved]
  - Diabetes mellitus [Recovered/Resolved]

NARRATIVE: CASE EVENT DATE: 20191230
